FAERS Safety Report 6703233-4 (Version None)
Quarter: 2010Q2

REPORT INFORMATION
  Report Type: 
  Country: None (occurrence: None)
  Receive Date: 20100430
  Receipt Date: 20100421
  Transmission Date: 20101027
  Serious: Yes (Other)
  Sender: FDA-Public Use
  Company Number: US-ABBOTT-10P-163-0639999-00

PATIENT
  Sex: Female
  Weight: 102.15 kg

DRUGS (5)
  1. HUMIRA [Suspect]
     Indication: RHEUMATOID ARTHRITIS
     Route: 058
     Dates: start: 20091101
  2. LEVOTHYROXINE [Concomitant]
     Indication: HYPOTHYROIDISM
  3. WARFARIN SODIUM [Concomitant]
     Indication: DRUG USE FOR UNKNOWN INDICATION
     Dosage: 5MG QOD 7.5MG QOD
     Route: 048
  4. ATENOLOL [Concomitant]
     Indication: ATRIAL FIBRILLATION
  5. PAIN MEDICATION [Concomitant]
     Indication: BACK PAIN

REACTIONS (9)
  - BACK PAIN [None]
  - CARPAL TUNNEL SYNDROME [None]
  - JOINT LOCK [None]
  - MENISCUS LESION [None]
  - MUSCLE SPASMS [None]
  - NECK PAIN [None]
  - NODULE ON EXTREMITY [None]
  - ROAD TRAFFIC ACCIDENT [None]
  - TRIGGER FINGER [None]
